FAERS Safety Report 26060326 (Version 1)
Quarter: 2025Q4

REPORT INFORMATION
  Report Type: Spontaneous
  Country: EU (occurrence: EU)
  Receive Date: 20251118
  Receipt Date: 20251118
  Transmission Date: 20260118
  Serious: Yes (Hospitalization)
  Sender: MYLAN
  Company Number: None

PATIENT
  Age: 61 Year
  Sex: Male

DRUGS (12)
  1. ATORVASTATIN [Interacting]
     Active Substance: ATORVASTATIN
     Indication: Hyperlipidaemia
     Dosage: 80 MILLIGRAM, QD (80MG, EVERY 24 HOURS)
     Dates: start: 20250708, end: 20251021
  2. ATORVASTATIN [Interacting]
     Active Substance: ATORVASTATIN
     Dosage: 80 MILLIGRAM, QD (80MG, EVERY 24 HOURS)
     Route: 048
     Dates: start: 20250708, end: 20251021
  3. ATORVASTATIN [Interacting]
     Active Substance: ATORVASTATIN
     Dosage: 80 MILLIGRAM, QD (80MG, EVERY 24 HOURS)
     Route: 048
     Dates: start: 20250708, end: 20251021
  4. ATORVASTATIN [Interacting]
     Active Substance: ATORVASTATIN
     Dosage: 80 MILLIGRAM, QD (80MG, EVERY 24 HOURS)
     Dates: start: 20250708, end: 20251021
  5. CYCLOSPORINE [Interacting]
     Active Substance: CYCLOSPORINE
     Indication: Bone marrow failure
     Dosage: 450 MILLIGRAM, QD (150-0-200)
     Route: 048
     Dates: start: 20211013, end: 20250706
  6. CYCLOSPORINE [Interacting]
     Active Substance: CYCLOSPORINE
     Dosage: 450 MILLIGRAM, QD (150-0-200)
     Dates: start: 20211013, end: 20250706
  7. CYCLOSPORINE [Interacting]
     Active Substance: CYCLOSPORINE
     Dosage: 450 MILLIGRAM, QD (150-0-200)
     Dates: start: 20211013, end: 20250706
  8. CYCLOSPORINE [Interacting]
     Active Substance: CYCLOSPORINE
     Dosage: 450 MILLIGRAM, QD (150-0-200)
     Route: 048
     Dates: start: 20211013, end: 20250706
  9. CYCLOSPORINE [Interacting]
     Active Substance: CYCLOSPORINE
     Dosage: 150 MILLIGRAM, BID (150MG, EVERY 12 HOURS)
     Route: 048
     Dates: start: 20250707, end: 20251020
  10. CYCLOSPORINE [Interacting]
     Active Substance: CYCLOSPORINE
     Dosage: 150 MILLIGRAM, BID (150MG, EVERY 12 HOURS)
     Dates: start: 20250707, end: 20251020
  11. CYCLOSPORINE [Interacting]
     Active Substance: CYCLOSPORINE
     Dosage: 150 MILLIGRAM, BID (150MG, EVERY 12 HOURS)
     Dates: start: 20250707, end: 20251020
  12. CYCLOSPORINE [Interacting]
     Active Substance: CYCLOSPORINE
     Dosage: 150 MILLIGRAM, BID (150MG, EVERY 12 HOURS)
     Route: 048
     Dates: start: 20250707, end: 20251020

REACTIONS (2)
  - Hepatic cytolysis [Recovering/Resolving]
  - Hyperbilirubinaemia [Recovering/Resolving]

NARRATIVE: CASE EVENT DATE: 20251020
